FAERS Safety Report 4568982-5 (Version None)
Quarter: 2005Q1

REPORT INFORMATION
  Report Type: 
  Country: None (occurrence: None)
  Receive Date: 20050203
  Receipt Date: 20030605
  Transmission Date: 20050727
  Serious: Yes (Disabling)
  Sender: FDA-Public Use
  Company Number: US-MERCK-0306USA00829

PATIENT
  Age: 39 Year
  Sex: Female
  Weight: 100 kg

DRUGS (9)
  1. VIOXX [Suspect]
     Indication: TENDONITIS
     Route: 048
     Dates: start: 20000101
  2. VIOXX [Suspect]
     Route: 048
     Dates: start: 20010403
  3. DARVOCET-N 100 [Concomitant]
     Route: 065
  4. SKELAXIN [Concomitant]
     Route: 065
     Dates: start: 20000922
  5. FIORICET TABLETS [Concomitant]
     Route: 065
  6. HYDROCODONE BITARTRATE [Concomitant]
     Route: 065
  7. VIOXX [Suspect]
     Route: 048
     Dates: start: 20000101
  8. VIOXX [Suspect]
     Route: 048
     Dates: start: 20000901
  9. VIOXX [Suspect]
     Route: 048
     Dates: start: 20000922

REACTIONS (10)
  - ADVERSE EVENT [None]
  - BACK PAIN [None]
  - CARPAL TUNNEL SYNDROME [None]
  - INSOMNIA [None]
  - MUSCLE SPASMS [None]
  - MUSCLE STRAIN [None]
  - NAUSEA [None]
  - NECK PAIN [None]
  - ROTATOR CUFF SYNDROME [None]
  - TENDON DISORDER [None]
